FAERS Safety Report 8370709-6 (Version None)
Quarter: 2012Q2

REPORT INFORMATION
  Report Type: 
  Country: None (occurrence: None)
  Receive Date: 20120518
  Receipt Date: 20120511
  Transmission Date: 20120825
  Serious: Yes (Death, Life-Threatening)
  Sender: FDA-Public Use
  Company Number: FR-VERTEX PHARMACEUTICALS INC.-AE-2010-0183

PATIENT
  Sex: Male
  Weight: 74 kg

DRUGS (11)
  1. IRBESARTAN [Concomitant]
     Indication: HYPERTENSION
     Route: 048
  2. VISMED [Concomitant]
     Indication: CORNEAL OEDEMA
     Route: 047
     Dates: start: 20100617
  3. PEGASYS [Suspect]
     Route: 058
     Dates: start: 20100828, end: 20101005
  4. ACETAMINOPHEN [Concomitant]
     Indication: ANTIVIRAL PROPHYLAXIS
     Route: 048
     Dates: start: 20100701
  5. TITANOREINE [Concomitant]
     Indication: HAEMORRHOIDS
     Route: 061
     Dates: start: 20100715
  6. NEORECORMON [Concomitant]
     Indication: ANAEMIA
     Route: 058
     Dates: start: 20100828
  7. URAPIDIL [Concomitant]
     Indication: HYPERTENSION
     Route: 048
  8. COPEGUS [Suspect]
     Indication: HEPATITIS C
     Dosage: 400MG IN THE MORNING/600MG IN THE EVENING
     Route: 048
     Dates: start: 20100701, end: 20101005
  9. VX-950 [Suspect]
     Indication: HEPATITIS C
     Route: 048
     Dates: start: 20100701, end: 20100923
  10. PEGASYS [Suspect]
     Indication: HEPATITIS C
     Route: 058
     Dates: start: 20100701, end: 20100827
  11. TADENAN [Concomitant]
     Indication: BENIGN PROSTATIC HYPERPLASIA
     Route: 048

REACTIONS (1)
  - MYOCARDIAL INFARCTION [None]
